FAERS Safety Report 4922121-7 (Version None)
Quarter: 2006Q1

REPORT INFORMATION
  Report Type: 
  Country: None (occurrence: None)
  Receive Date: 20060222
  Receipt Date: 20060222
  Transmission Date: 20060701
  Serious: Yes (Life-Threatening)
  Sender: FDA-Public Use
  Company Number: None

PATIENT
  Age: 39 Year
  Sex: Male
  Weight: 74.7 kg

DRUGS (2)
  1. HURRICANE 20% BENZOCAINE [Suspect]
     Indication: ANAESTHESIA
     Dosage: BENZOCAINE 20% 1X FOR TEE SPRAY
     Route: 061
     Dates: start: 20051208
  2. HURRICANE 20% BENZOCAINE [Suspect]
     Indication: ECHOCARDIOGRAM
     Dosage: BENZOCAINE 20% 1X FOR TEE SPRAY
     Route: 061
     Dates: start: 20051208

REACTIONS (6)
  - CHEST PAIN [None]
  - ELECTROCARDIOGRAM ST SEGMENT DEPRESSION [None]
  - HYPERHIDROSIS [None]
  - POST PROCEDURAL COMPLICATION [None]
  - POST PROCEDURAL NAUSEA [None]
  - SINUS TACHYCARDIA [None]
